FAERS Safety Report 18109561 (Version 4)
Quarter: 2021Q4

REPORT INFORMATION
  Report Type: Report from Study
  Country: IT (occurrence: IT)
  Receive Date: 20200804
  Receipt Date: 20211011
  Transmission Date: 20220303
  Serious: Yes (Other)
  Sender: FDA-Public Use
  Company Number: IT-BIAL-BIAL-07524

PATIENT
  Age: 63 Year
  Sex: Female
  Weight: 48 kg

DRUGS (8)
  1. PRAMIPEXOLE [Interacting]
     Active Substance: PRAMIPEXOLE
     Indication: Parkinson^s disease
     Dosage: 1.05 MILLIGRAM, QD(1.05 MILLIGRAM, 1X / DAY)
     Route: 048
     Dates: start: 2010, end: 20200715
  2. PRAMIPEXOLE [Interacting]
     Active Substance: PRAMIPEXOLE
     Dosage: 0.52 MILLIGRAM, QD(0.52 MILLIGRAM, 1X / DAY)
     Route: 048
     Dates: start: 20200716
  3. PRAMIPEXOLE [Interacting]
     Active Substance: PRAMIPEXOLE
     Dosage: 2.1 MILLIGRAM, QD (2.1 MILLIGRAM, 1X / DAY)
     Route: 048
  4. OPICAPONE [Interacting]
     Active Substance: OPICAPONE
     Indication: Parkinson^s disease
     Dosage: 50 MILLIGRAM, QD(50 MILLIGRAM, 1X / DAY)
     Route: 048
     Dates: start: 20200701, end: 20201215
  5. CARBIDOPA\LEVODOPA [Concomitant]
     Active Substance: CARBIDOPA\LEVODOPA
     Indication: Parkinson^s disease
     Dosage: 0.5 DOSAGE FORM(100/25 MILLIGRAM, 0.5 DOSAGE FORM, 5 TIMES A DAY)
     Route: 048
     Dates: start: 2010
  6. CARBIDOPA\LEVODOPA [Concomitant]
     Active Substance: CARBIDOPA\LEVODOPA
     Dosage: 200 MILLIGRAM
     Route: 048
  7. CARBIDOPA\LEVODOPA [Concomitant]
     Active Substance: CARBIDOPA\LEVODOPA
     Dosage: 6 TIMES DAILY, TABLET
     Route: 048
  8. CARBIDOPA\LEVODOPA [Concomitant]
     Active Substance: CARBIDOPA\LEVODOPA
     Dosage: 200 MILLIGRAM, QD
     Route: 048

REACTIONS (3)
  - Hallucination [Recovered/Resolved]
  - Drug interaction [Not Recovered/Not Resolved]
  - Hallucination, visual [Not Recovered/Not Resolved]

NARRATIVE: CASE EVENT DATE: 20200710
